FAERS Safety Report 20628329 (Version 1)
Quarter: 2022Q1

REPORT INFORMATION
  Report Type: Report from Study
  Country: IE (occurrence: IE)
  Receive Date: 20220323
  Receipt Date: 20220323
  Transmission Date: 20220423
  Serious: Yes (Hospitalization)
  Sender: FDA-Public Use
  Company Number: IE-BAXTER-2022BAX002432

PATIENT
  Age: 47 Year
  Sex: Female

DRUGS (11)
  1. VANCOMYCIN HYDROCHLORIDE [Suspect]
     Active Substance: VANCOMYCIN HYDROCHLORIDE
     Indication: Decubitus ulcer
     Dosage: 3000 MG, DAILY VANCOMYCIN 1500 MG IN 150 ML NACL 0.9% LV50
     Route: 042
     Dates: start: 20220125
  2. VANCOMYCIN HYDROCHLORIDE [Suspect]
     Active Substance: VANCOMYCIN HYDROCHLORIDE
     Dosage: 2500 MG, 1X/DAY
     Route: 042
  3. SODIUM CHLORIDE [Suspect]
     Active Substance: SODIUM CHLORIDE
     Indication: Medication dilution
     Dosage: VANCOMYCIN 1500 MG IN 150 ML NACL 0.9% LV50
     Route: 042
     Dates: start: 20220125
  4. SODIUM CHLORIDE [Suspect]
     Active Substance: SODIUM CHLORIDE
     Indication: Catheter management
     Dosage: 10 ML
     Route: 042
     Dates: start: 20220125
  5. WATER [Suspect]
     Active Substance: WATER
     Indication: Medication dilution
     Dosage: 2 UNIT, DAILY
     Route: 042
     Dates: start: 20220125
  6. CEFTRIAXONE SODIUM [Suspect]
     Active Substance: CEFTRIAXONE SODIUM
     Indication: Decubitus ulcer
     Dosage: 2 G
     Route: 042
  7. OXYBUTYNIN [Concomitant]
     Active Substance: OXYBUTYNIN
     Dosage: 10 MG
  8. OLANZAPINE [Concomitant]
     Active Substance: OLANZAPINE
     Dosage: 10 MG, 1X/DAY
  9. MIRTAZAPINE [Concomitant]
     Active Substance: MIRTAZAPINE
     Dosage: 15 MG
  10. FLAGYL [Concomitant]
     Active Substance: METRONIDAZOLE\METRONIDAZOLE HYDROCHLORIDE
     Dosage: 1200 G
  11. LUSTRAL [Concomitant]
     Active Substance: SERTRALINE HYDROCHLORIDE
     Dosage: 200 MG, 1X/DAY, DOSAGE FORM: TABLET

REACTIONS (4)
  - Erythema [Unknown]
  - Pruritus [Unknown]
  - Rash [Unknown]
  - Tachycardia [Unknown]

NARRATIVE: CASE EVENT DATE: 20220130
